FAERS Safety Report 5374540-5 (Version None)
Quarter: 2007Q2

REPORT INFORMATION
  Report Type: 
  Country: None (occurrence: None)
  Receive Date: 20070627
  Receipt Date: 20060602
  Transmission Date: 20071010
  Serious: Yes (Hospitalization)
  Sender: FDA-Public Use
  Company Number: 450462

PATIENT
  Age: 61 Year
  Sex: Female
  Weight: 93.9 kg

DRUGS (6)
  1. XELODA [Suspect]
     Indication: BREAST CANCER
     Dosage: 1500 MG, 2 PER DAY;
     Dates: start: 20060419
  2. CALTRATE (CALCIUM CARBONATE) [Concomitant]
  3. UNSPECIFIED DRUG (GENERIC UNKNOWN) [Concomitant]
  4. LASIX [Concomitant]
  5. CODEINE SUL TAB [Concomitant]
  6. FENTANYL [Concomitant]

REACTIONS (1)
  - DYSPHAGIA [None]
